FAERS Safety Report 5809861-2 (Version None)
Quarter: 2008Q3

REPORT INFORMATION
  Report Type: 
  Country: None (occurrence: None)
  Receive Date: 20080714
  Receipt Date: 20080714
  Transmission Date: 20090109
  Serious: Yes (Life-Threatening, Hospitalization)
  Sender: FDA-Public Use
  Company Number: None

PATIENT
  Sex: Female

DRUGS (1)
  1. AVEENO POST SMOOTH MOIST LOTION J+J CONSUMER COMPANIES [Suspect]
     Dosage: 1 TOP
     Route: 061

REACTIONS (1)
  - ANAPHYLACTIC SHOCK [None]
